FAERS Safety Report 13613885 (Version 1)
Quarter: 2017Q2

REPORT INFORMATION
  Report Type: Spontaneous
  Country: CN (occurrence: CN)
  Receive Date: 20170606
  Receipt Date: 20170606
  Transmission Date: 20170830
  Serious: Yes (Hospitalization, Other)
  Sender: FDA-Public Use
  Company Number: CN-BAXTER-2017BAX022400

PATIENT
  Age: 90 Year
  Sex: Male
  Weight: 75 kg

DRUGS (3)
  1. 20% MANNITOL INJECTION [Suspect]
     Active Substance: MANNITOL
     Indication: CRANIOCEREBRAL INJURY
     Route: 041
     Dates: start: 20170226, end: 20170227
  2. 20% MANNITOL INJECTION [Suspect]
     Active Substance: MANNITOL
     Indication: INTRACRANIAL PRESSURE INCREASED
  3. 20% MANNITOL INJECTION [Suspect]
     Active Substance: MANNITOL
     Indication: DEHYDRATION

REACTIONS (4)
  - Anuria [Not Recovered/Not Resolved]
  - Condition aggravated [Unknown]
  - Renal impairment [Not Recovered/Not Resolved]
  - Craniocerebral injury [Unknown]

NARRATIVE: CASE EVENT DATE: 20170227
